FAERS Safety Report 20176800 (Version 1)
Quarter: 2021Q4

REPORT INFORMATION
  Report Type: Spontaneous
  Country: US (occurrence: None)
  Receive Date: 20211209
  Receipt Date: 20211209
  Transmission Date: 20220303
  Serious: No
  Sender: FDA-Public Use
  Company Number: None

PATIENT
  Age: 58 Year

DRUGS (1)
  1. IVERMECTIN [Suspect]
     Active Substance: IVERMECTIN

REACTIONS (14)
  - Constipation [None]
  - Nausea [None]
  - Vomiting [None]
  - Liver function test abnormal [None]
  - Hyperglycaemia [None]
  - Respiratory disorder [None]
  - X-ray abnormal [None]
  - Self-medication [None]
  - Product use in unapproved indication [None]
  - Blood pressure increased [None]
  - Blood glucose increased [None]
  - Aspartate aminotransferase increased [None]
  - Alanine aminotransferase increased [None]
  - Toxicity to various agents [None]
